FAERS Safety Report 16566962 (Version 1)
Quarter: 2019Q3

REPORT INFORMATION
  Report Type: Report from Study
  Country: PE (occurrence: PE)
  Receive Date: 20190712
  Receipt Date: 20190712
  Transmission Date: 20191004
  Serious: Yes (Death, Hospitalization, Other)
  Sender: FDA-Public Use
  Company Number: PE-TEVA-2019-PE-1076920

PATIENT
  Age: 89 Year
  Sex: Male

DRUGS (1)
  1. EFICAERO [Suspect]
     Active Substance: FLUTICASONE PROPIONATE\SALMETEROL XINAFOATE
     Dosage: 250/25 MCG
     Route: 065
     Dates: start: 20140713, end: 2018

REACTIONS (1)
  - Myocardial infarction [Fatal]
